FAERS Safety Report 15739379 (Version 1)
Quarter: 2018Q4

REPORT INFORMATION
  Report Type: Spontaneous
  Country: US (occurrence: US)
  Receive Date: 20181204
  Receipt Date: 20181204
  Transmission Date: 20190205
  Serious: Yes (Disabling)
  Sender: FDA-Public Use
  Company Number: None

PATIENT
  Age: 56 Year
  Sex: Male
  Weight: 78.75 kg

DRUGS (3)
  1. SUPPLEMENTS [Concomitant]
     Active Substance: UNSPECIFIED INGREDIENT
  2. PROPECIA [Suspect]
     Active Substance: FINASTERIDE
     Dosage: ?          QUANTITY:1 TABLET(S);?
     Route: 048
  3. MULTI VITAMINS [Concomitant]
     Active Substance: VITAMINS

REACTIONS (2)
  - Genital hypoaesthesia [None]
  - Anorgasmia [None]

NARRATIVE: CASE EVENT DATE: 20100601
